FAERS Safety Report 13581475 (Version 2)
Quarter: 2017Q2

REPORT INFORMATION
  Report Type: Spontaneous
  Country: US (occurrence: US)
  Receive Date: 20170525
  Receipt Date: 20170529
  Transmission Date: 20170830
  Serious: Yes (Hospitalization, Other)
  Sender: FDA-Public Use
  Company Number: US-DRREDDYS-USA/USA/17/0090870

PATIENT
  Age: 75 Year
  Sex: Female

DRUGS (5)
  1. LETROZOLE. [Suspect]
     Active Substance: LETROZOLE
     Indication: BREAST CANCER RECURRENT
     Route: 065
  2. TAMOXIFEN [Suspect]
     Active Substance: TAMOXIFEN
     Indication: OESTROGEN RECEPTOR POSITIVE BREAST CANCER
     Route: 065
  3. RALOXIFENE. [Suspect]
     Active Substance: RALOXIFENE
     Indication: OESTROGEN RECEPTOR POSITIVE BREAST CANCER
     Dates: end: 2010
  4. RALOXIFENE. [Suspect]
     Active Substance: RALOXIFENE
     Indication: BREAST CANCER STAGE I
     Route: 065
     Dates: end: 2010
  5. TAMOXIFEN [Suspect]
     Active Substance: TAMOXIFEN
     Indication: BREAST CANCER STAGE I

REACTIONS (1)
  - Aortic aneurysm [Unknown]
